FAERS Safety Report 17003798 (Version 2)
Quarter: 2020Q1

REPORT INFORMATION
  Report Type: Spontaneous
  Country: US (occurrence: US)
  Receive Date: 20191107
  Receipt Date: 20200109
  Transmission Date: 20200409
  Serious: No
  Sender: FDA-Public Use
  Company Number: US-MYLANLABS-2019M1100498

PATIENT
  Age: 80 Year
  Sex: Male
  Weight: 91 kg

DRUGS (4)
  1. RIVASTIGMINE TRANSDERMAL SYSTEM [Suspect]
     Active Substance: RIVASTIGMINE
     Indication: PARKINSONISM
  2. MEMANTINE HCL [Concomitant]
     Active Substance: MEMANTINE
     Indication: DEMENTIA
     Dosage: UNKNOWN
     Route: 048
     Dates: start: 20190906
  3. RIVASTIGMINE TRANSDERMAL SYSTEM [Suspect]
     Active Substance: RIVASTIGMINE
     Indication: DEMENTIA
     Dosage: UNK UNK, QD
     Route: 062
     Dates: start: 20190924
  4. MEMANTINE HCL [Concomitant]
     Active Substance: MEMANTINE
     Indication: PARKINSONISM

REACTIONS (3)
  - Application site erythema [Recovering/Resolving]
  - Product adhesion issue [Not Recovered/Not Resolved]
  - Application site pruritus [Recovering/Resolving]

NARRATIVE: CASE EVENT DATE: 20190924
